FAERS Safety Report 19736832 (Version 1)
Quarter: 2021Q3

REPORT INFORMATION
  Report Type: Spontaneous
  Country: US (occurrence: US)
  Receive Date: 20210823
  Receipt Date: 20210823
  Transmission Date: 20211014
  Serious: No
  Sender: FDA-Public Use
  Company Number: US-BAYER-2021-197197

PATIENT
  Sex: Male

DRUGS (1)
  1. CIPRO [Suspect]
     Active Substance: CIPROFLOXACIN HYDROCHLORIDE
     Dosage: 500 MG, QD
     Route: 048
     Dates: start: 20210814, end: 20210819

REACTIONS (4)
  - Headache [None]
  - Adverse event [None]
  - Peripheral swelling [None]
  - Dyspnoea [Recovered/Resolved]

NARRATIVE: CASE EVENT DATE: 202108
